FAERS Safety Report 9818697 (Version 1)
Quarter: 2014Q1

REPORT INFORMATION
  Report Type: Spontaneous
  Country: IT (occurrence: IT)
  Receive Date: 20140115
  Receipt Date: 20140115
  Transmission Date: 20141002
  Serious: Yes (Other)
  Sender: FDA-Public Use
  Company Number: IT-BAYER-2014-003448

PATIENT
  Age: 81 Year
  Sex: Male

DRUGS (3)
  1. ADALAT [Suspect]
     Dosage: UNK
     Route: 048
     Dates: end: 20131129
  2. ATENOLOL [Suspect]
     Dosage: UNK
     Route: 048
     Dates: end: 20131129
  3. OLMESARTAN [Concomitant]
     Dosage: 10 MG, UNK

REACTIONS (3)
  - Atrioventricular block first degree [None]
  - Hypotension [None]
  - Bradycardia [None]
